FAERS Safety Report 11784799 (Version 1)
Quarter: 2015Q4

REPORT INFORMATION
  Report Type: Spontaneous
  Country: US (occurrence: US)
  Receive Date: 20151130
  Receipt Date: 20151130
  Transmission Date: 20160305
  Serious: Yes (Other)
  Sender: FDA-Public Use
  Company Number: US-ROCHE-1581203

PATIENT
  Sex: Male

DRUGS (1)
  1. XOLAIR [Suspect]
     Active Substance: OMALIZUMAB
     Indication: PRODUCT USED FOR UNKNOWN INDICATION
     Route: 064

REACTIONS (7)
  - Eosinophilic oesophagitis [Unknown]
  - Bronchial hyperreactivity [Unknown]
  - Hypotonia [Unknown]
  - Vitamin D deficiency [Unknown]
  - Femoral anteversion [Unknown]
  - Tibial torsion [Unknown]
  - Foetal exposure during pregnancy [Unknown]
